FAERS Safety Report 11580668 (Version 1)
Quarter: 2015Q3

REPORT INFORMATION
  Report Type: Spontaneous
  Country: US (occurrence: US)
  Receive Date: 20150930
  Receipt Date: 20150930
  Transmission Date: 20151125
  Serious: Yes (Disabling, Other)
  Sender: FDA-Public Use
  Company Number: PHEH2015US018866

PATIENT
  Age: 69 Year
  Sex: Male
  Weight: 65.32 kg

DRUGS (1)
  1. EXJADE [Suspect]
     Active Substance: DEFERASIROX
     Indication: IRON OVERLOAD
     Dosage: 500 MG, TID
     Route: 048
     Dates: start: 20150701, end: 20150901

REACTIONS (6)
  - Constipation [Not Recovered/Not Resolved]
  - Renal function test abnormal [Unknown]
  - Renal failure [Unknown]
  - Dry mouth [Not Recovered/Not Resolved]
  - Prostate infection [Unknown]
  - Liver function test abnormal [Unknown]

NARRATIVE: CASE EVENT DATE: 20150824
